FAERS Safety Report 5442819-4 (Version None)
Quarter: 2007Q3

REPORT INFORMATION
  Report Type: 
  Country: None (occurrence: None)
  Receive Date: 20070904
  Receipt Date: 20070830
  Transmission Date: 20080115
  Serious: Yes (Hospitalization)
  Sender: FDA-Public Use
  Company Number: FR-MERCK-0709FRA00001

PATIENT
  Age: 61 Year
  Sex: Female

DRUGS (3)
  1. PRIMAXIN [Suspect]
     Indication: MYCOBACTERIUM CHELONEI INFECTION
     Route: 042
     Dates: start: 20070409, end: 20070514
  2. PRIMAXIN [Suspect]
     Route: 042
     Dates: start: 20070601, end: 20070601
  3. TOBRAMYCIN [Concomitant]
     Indication: MYCOBACTERIUM CHELONEI INFECTION
     Route: 042
     Dates: start: 20070416

REACTIONS (4)
  - FACE OEDEMA [None]
  - LYMPHADENOPATHY [None]
  - PYREXIA [None]
  - RASH MACULO-PAPULAR [None]
